FAERS Safety Report 5449355-X (Version None)
Quarter: 2007Q3

REPORT INFORMATION
  Report Type: 
  Country: None (occurrence: None)
  Receive Date: 20070907
  Receipt Date: 20070829
  Transmission Date: 20080115
  Serious: Yes (Other)
  Sender: FDA-Public Use
  Company Number: 2007JP004062

PATIENT
  Age: 73 Year
  Sex: Male

DRUGS (2)
  1. PROGRAF [Suspect]
     Indication: RHEUMATOID ARTHRITIS
     Dosage: 1 MG/D , ORAL
     Route: 048
     Dates: start: 20070501, end: 20070809
  2. METHOTREXATE [Suspect]
     Dosage: 6 MG/D, ORAL
     Route: 048
     Dates: end: 20070809

REACTIONS (1)
  - INTERSTITIAL LUNG DISEASE [None]
